FAERS Safety Report 5258509-7 (Version None)
Quarter: 2007Q1

REPORT INFORMATION
  Report Type: 
  Country: None (occurrence: None)
  Receive Date: 20070305
  Receipt Date: 20070216
  Transmission Date: 20070707
  Serious: Yes (Hospitalization)
  Sender: FDA-Public Use
  Company Number: 2007RR-05882

PATIENT
  Age: 12 Year
  Sex: Female

DRUGS (1)
  1. IBUPROFEN [Suspect]
     Indication: INFECTIOUS MONONUCLEOSIS

REACTIONS (6)
  - ARTHRITIS [None]
  - CELLULITIS [None]
  - HEPATITIS [None]
  - PLEURAL EFFUSION [None]
  - RHABDOMYOLYSIS [None]
  - TOXIC SHOCK SYNDROME STREPTOCOCCAL [None]
